FAERS Safety Report 8305766-6 (Version None)
Quarter: 2012Q2

REPORT INFORMATION
  Report Type: 
  Country: None (occurrence: None)
  Receive Date: 20120423
  Receipt Date: 20120411
  Transmission Date: 20120825
  Serious: Yes (Hospitalization)
  Sender: FDA-Public Use
  Company Number: BR-ELI_LILLY_AND_COMPANY-BR201003002108

PATIENT
  Sex: Female
  Weight: 57 kg

DRUGS (2)
  1. EXELON [Concomitant]
     Indication: DEMENTIA ALZHEIMER'S TYPE
     Dosage: 2.5 MG, DAILY (1/D)
     Route: 048
  2. FORTEO [Suspect]
     Indication: OSTEOPOROSIS
     Dosage: 20 UG, DAILY (1/D)
     Route: 065
     Dates: start: 20090301, end: 20110801

REACTIONS (2)
  - PAIN IN EXTREMITY [None]
  - THROMBOSIS [None]
